FAERS Safety Report 14712418 (Version 2)
Quarter: 2018Q2

REPORT INFORMATION
  Report Type: Report from Study
  Country: None (occurrence: US)
  Receive Date: 20180404
  Receipt Date: 20180409
  Transmission Date: 20180711
  Serious: Yes (Other)
  Sender: FDA-Public Use
  Company Number: US-ABBVIE-18K-163-2309569-00

PATIENT
  Age: 70 Year
  Sex: Male
  Weight: 113.5 kg

DRUGS (3)
  1. LANTUS [Concomitant]
     Active Substance: INSULIN GLARGINE
     Indication: TYPE 2 DIABETES MELLITUS
  2. HUMIRA [Suspect]
     Active Substance: ADALIMUMAB
     Indication: PSORIASIS
     Route: 058
     Dates: start: 201706
  3. NOVOLOG [Concomitant]
     Active Substance: INSULIN ASPART
     Indication: TYPE 2 DIABETES MELLITUS

REACTIONS (4)
  - Influenza [Recovering/Resolving]
  - Infection transmission via personal contact [Unknown]
  - Nasopharyngitis [Unknown]
  - Poor peripheral circulation [Not Recovered/Not Resolved]

NARRATIVE: CASE EVENT DATE: 201803
